FAERS Safety Report 7268956-X (Version None)
Quarter: 2011Q1

REPORT INFORMATION
  Report Type: 
  Country: None (occurrence: None)
  Receive Date: 20110201
  Receipt Date: 20110127
  Transmission Date: 20110831
  Serious: Yes (Life-Threatening, Hospitalization)
  Sender: FDA-Public Use
  Company Number: JP-PFIZER INC-2011004084

PATIENT
  Age: 61 Year
  Sex: Female
  Weight: 58 kg

DRUGS (3)
  1. 5-FU [Concomitant]
     Indication: PREOPERATIVE CARE
     Dosage: 760 MG, 1X/DAY
     Route: 041
     Dates: start: 20100316, end: 20100316
  2. FARMORUBICIN [Suspect]
     Indication: PREOPERATIVE CARE
     Dosage: 150 MG, 1X/DAY
     Route: 041
     Dates: start: 20100316, end: 20100316
  3. ENDOXAN [Suspect]
     Indication: PREOPERATIVE CARE
     Dosage: 760 MG, 1X/DAY
     Route: 041
     Dates: start: 20100316, end: 20100316

REACTIONS (3)
  - HYPONATRAEMIA [None]
  - INAPPROPRIATE ANTIDIURETIC HORMONE SECRETION [None]
  - PULMONARY OEDEMA [None]
